FAERS Safety Report 20115425 (Version 1)
Quarter: 2021Q4

REPORT INFORMATION
  Report Type: Spontaneous
  Country: US (occurrence: US)
  Receive Date: 20211126
  Receipt Date: 20211126
  Transmission Date: 20220303
  Serious: Yes (Other)
  Sender: FDA-Public Use
  Company Number: US-MLMSERVICE-20211109-3206035-1

PATIENT
  Age: 87 Year
  Sex: Female
  Weight: 85.9 kg

DRUGS (4)
  1. AMIODARONE HYDROCHLORIDE [Suspect]
     Active Substance: AMIODARONE HYDROCHLORIDE
     Indication: Atrial fibrillation
     Dosage: 300 MILLIGRAM, TWO TIMES A DAY
     Route: 065
  2. DIGOXIN [Suspect]
     Active Substance: DIGOXIN
     Indication: Atrial fibrillation
     Dosage: 0.25 MILLIGRAM, ONCE A DAY
     Route: 065
  3. DIGOXIN [Suspect]
     Active Substance: DIGOXIN
     Dosage: 0.125 MILLIGRAM, ONCE A DAY
     Route: 065
  4. DIGOXIN [Suspect]
     Active Substance: DIGOXIN
     Dosage: 0.250 MILLIGRAM, ONCE A DAY
     Route: 065

REACTIONS (6)
  - Ocular toxicity [Recovered/Resolved]
  - Vision blurred [Recovered/Resolved]
  - Dyschromatopsia [Recovered/Resolved]
  - Visual impairment [Recovered/Resolved]
  - Confusional state [Recovered/Resolved]
  - Retinal toxicity [Recovered/Resolved]
